FAERS Safety Report 19279145 (Version 1)
Quarter: 2021Q2

REPORT INFORMATION
  Report Type: Spontaneous
  Country: US (occurrence: US)
  Receive Date: 20210520
  Receipt Date: 20210520
  Transmission Date: 20210717
  Serious: Yes (Other)
  Sender: FDA-Public Use
  Company Number: NVSC2021US108338

PATIENT
  Age: 68 Year
  Sex: Male

DRUGS (1)
  1. XIIDRA [Suspect]
     Active Substance: LIFITEGRAST
     Indication: DRY EYE
     Dosage: UNK (6 WEEKS)
     Route: 065

REACTIONS (5)
  - Dry eye [Unknown]
  - Eye irritation [Unknown]
  - Immunodeficiency [Unknown]
  - Crohn^s disease [Unknown]
  - Lacrimation increased [Unknown]
